FAERS Safety Report 11070014 (Version 10)
Quarter: 2021Q1

REPORT INFORMATION
  Report Type: Report from Study
  Country: CA (occurrence: CA)
  Receive Date: 20150427
  Receipt Date: 20210119
  Transmission Date: 20210419
  Serious: Yes (Hospitalization, Other)
  Sender: FDA-Public Use
  Company Number: PHHY2013CA139827

PATIENT
  Age: 64 Year
  Sex: Female

DRUGS (14)
  1. SANDOSTATIN LAR DEPOT [Suspect]
     Active Substance: OCTREOTIDE ACETATE
  2. METFORMIN [Concomitant]
     Active Substance: METFORMIN HYDROCHLORIDE
     Dosage: 0.5 DF, A TABLET WEEKLY (FOR THE FIRST 3 WEEKS) AT THE REGULAR DOSE
     Route: 065
  3. METFORMIN [Concomitant]
     Active Substance: METFORMIN HYDROCHLORIDE
     Dosage: 1 DF, BID
     Route: 065
     Dates: start: 20190822
  4. SANDOSTATIN LAR DEPOT [Suspect]
     Active Substance: OCTREOTIDE ACETATE
     Indication: ACROMEGALY
     Dosage: 10 MG, QMO (EVERY FOUR WEEK)
     Route: 030
     Dates: start: 20080601
  5. GLUCOPHAGE [Concomitant]
     Active Substance: METFORMIN HYDROCHLORIDE
     Dosage: 1 DF, BID
     Route: 065
  6. GLUCOPHAGE [Concomitant]
     Active Substance: METFORMIN HYDROCHLORIDE
     Dosage: 500 MG, BID
     Route: 065
  7. GLUCOPHAGE [Concomitant]
     Active Substance: METFORMIN HYDROCHLORIDE
     Indication: PRODUCT USED FOR UNKNOWN INDICATION
     Dosage: 0.5 DF, BID (FOR 2 WEEKS)
     Route: 065
  8. METFORMIN [Concomitant]
     Active Substance: METFORMIN HYDROCHLORIDE
     Dosage: 1 DF, TID (FROM 4 TH WEEK)
     Route: 065
  9. SYNTHROID [Concomitant]
     Active Substance: LEVOTHYROXINE SODIUM
     Indication: PRODUCT USED FOR UNKNOWN INDICATION
     Dosage: 0.050 MG, QD
     Route: 065
  10. AVAPRO [Concomitant]
     Active Substance: IRBESARTAN
     Indication: PRODUCT USED FOR UNKNOWN INDICATION
     Dosage: 150 MG, QD
     Route: 065
  11. METFORMIN [Concomitant]
     Active Substance: METFORMIN HYDROCHLORIDE
     Indication: PRODUCT USED FOR UNKNOWN INDICATION
     Dosage: 0.5 DF, TID
     Route: 065
  12. LIPITOR [Concomitant]
     Active Substance: ATORVASTATIN CALCIUM
     Indication: PRODUCT USED FOR UNKNOWN INDICATION
     Dosage: 10 MG, QD
     Route: 065
  13. SANDOSTATIN LAR DEPOT [Suspect]
     Active Substance: OCTREOTIDE ACETATE
     Dosage: 10 MG, QMO (EVERY 4 WEEKS)
     Route: 030
     Dates: start: 20100226
  14. ASAPHEN [Concomitant]
     Active Substance: ASPIRIN
     Indication: PRODUCT USED FOR UNKNOWN INDICATION
     Dosage: 80 MG, QD
     Route: 065
     Dates: end: 1954

REACTIONS (29)
  - Labyrinthitis [Unknown]
  - Respiratory rate increased [Unknown]
  - Body temperature decreased [Unknown]
  - Blood pressure increased [Unknown]
  - Blood pressure diastolic decreased [Unknown]
  - Photopsia [Unknown]
  - Nasopharyngitis [Unknown]
  - Pruritus [Unknown]
  - Diarrhoea [Recovering/Resolving]
  - Needle issue [Unknown]
  - Arthropathy [Unknown]
  - Cataract [Unknown]
  - Procedural pain [Unknown]
  - Sleep apnoea syndrome [Unknown]
  - Headache [Unknown]
  - Fatigue [Unknown]
  - Injection site warmth [Unknown]
  - Muscle spasms [Recovered/Resolved]
  - Heart rate increased [Unknown]
  - Injection site haemorrhage [Unknown]
  - Injection site pain [Unknown]
  - Arthralgia [Unknown]
  - Pain in extremity [Unknown]
  - Erythema [Unknown]
  - Hot flush [Unknown]
  - Myalgia [Unknown]
  - Rhinorrhoea [Unknown]
  - Neck pain [Unknown]
  - Dizziness [Unknown]

NARRATIVE: CASE EVENT DATE: 20131127
